FAERS Safety Report 12417281 (Version 1)
Quarter: 2016Q2

REPORT INFORMATION
  Report Type: Report from Study
  Country: US (occurrence: US)
  Receive Date: 20160530
  Receipt Date: 20160530
  Transmission Date: 20160815
  Serious: Yes (Other)
  Sender: FDA-Public Use
  Company Number: US-JNJFOC-20130620676

PATIENT
  Age: 49 Year
  Sex: Female

DRUGS (1)
  1. REMICADE [Suspect]
     Active Substance: INFLIXIMAB
     Indication: PRODUCT USED FOR UNKNOWN INDICATION
     Route: 042
     Dates: end: 20121118

REACTIONS (5)
  - Fungal infection [Unknown]
  - General physical health deterioration [Unknown]
  - Herpes zoster [Unknown]
  - Immunodeficiency [Unknown]
  - Sinusitis [Unknown]

NARRATIVE: CASE EVENT DATE: 201211
